FAERS Safety Report 14599754 (Version 4)
Quarter: 2021Q1

REPORT INFORMATION
  Report Type: Spontaneous
  Country: CA (occurrence: CA)
  Receive Date: 20180305
  Receipt Date: 20210114
  Transmission Date: 20210419
  Serious: Yes (Death, Other)
  Sender: FDA-Public Use
  Company Number: CA-PFIZER INC-2018087188

PATIENT
  Age: 69 Year
  Sex: Female

DRUGS (13)
  1. APO K [Concomitant]
     Active Substance: POTASSIUM
  2. VENLAFAXINE XR [Concomitant]
     Active Substance: VENLAFAXINE HYDROCHLORIDE
  3. NOVO?SPIROTON [Concomitant]
  4. WARFARIN [Concomitant]
     Active Substance: WARFARIN
  5. MORPHINE [Concomitant]
     Active Substance: MORPHINE
     Dosage: 60 MG, UNK
  6. SYNTHROID [Concomitant]
     Active Substance: LEVOTHYROXINE SODIUM
  7. MORPHINE [Concomitant]
     Active Substance: MORPHINE
     Dosage: 30 MG, UNK
  8. VOLIBRIS [Concomitant]
     Active Substance: AMBRISENTAN
  9. FUROSEMIDE. [Concomitant]
     Active Substance: FUROSEMIDE
  10. AERIUS [EBASTINE] [Concomitant]
     Active Substance: EBASTINE
     Dosage: 60 MG AND 30 MG
  11. REVATIO [Suspect]
     Active Substance: SILDENAFIL CITRATE
     Indication: PULMONARY ARTERIAL HYPERTENSION
     Dosage: UNK
     Route: 048
  12. LYRICA [Concomitant]
     Active Substance: PREGABALIN
  13. MULTIVITAMINS WITH IRON [Concomitant]
     Active Substance: IRON\VITAMINS

REACTIONS (1)
  - Death [Fatal]

NARRATIVE: CASE EVENT DATE: 20180227
